FAERS Safety Report 8951437 (Version 1)
Quarter: 2012Q4

REPORT INFORMATION
  Report Type: Spontaneous
  Country: DE (occurrence: None)
  Receive Date: 20121129
  Receipt Date: 20121129
  Transmission Date: 20130627
  Serious: Yes (Hospitalization)
  Sender: FDA-Public Use
  Company Number: NSR_00719_2012

PATIENT
  Age: 47 Year
  Sex: Female

DRUGS (6)
  1. BACLOFEN [Suspect]
     Indication: SPASTIC PARAPLEGIA
     Dosage: injected into the side-port of the pump instead of the reservoir(not the prescribed amount)
     Route: 037
  2. BACLOFEN [Suspect]
     Indication: SPASTIC PARAPLEGIA
     Dosage: (800 mcg baclofen/day into the subarachnoid space at a constant rate)
     Route: 037
  3. BACLOFEN [Suspect]
     Indication: SPASTIC PARAPLEGIA
     Route: 037
  4. BACLOFEN [Suspect]
     Indication: SPASTIC PARAPLEGIA
     Dosage: (800 mcg baclofen/day into the subarachnoid space at a constant rate)
     Route: 037
  5. BACLOFEN [Suspect]
     Indication: SPASTIC PARAPLEGIA
     Dosage: DF
     Route: 037
  6. BACLOFEN [Suspect]
     Indication: SPASTIC PARAPLEGIA
     Route: 037

REACTIONS (25)
  - Dizziness [None]
  - Fatigue [None]
  - Asthenia [None]
  - Epilepsy [None]
  - Apnoea [None]
  - Oxygen saturation decreased [None]
  - Blood pressure decreased [None]
  - Therapeutic response decreased [None]
  - Lung infection [None]
  - Aspiration [None]
  - Coma [None]
  - Areflexia [None]
  - Hypotonia [None]
  - Toxicity to various agents [None]
  - Incorrect route of drug administration [None]
  - Blood pressure increased [None]
  - Complex partial seizures [None]
  - Loss of consciousness [None]
  - Tachycardia [None]
  - Automatism [None]
  - Delirium [None]
  - Confusional state [None]
  - Hallucination [None]
  - Aggression [None]
  - Incorrect dose administered [None]
